FAERS Safety Report 10188358 (Version 1)
Quarter: 2014Q2

REPORT INFORMATION
  Report Type: Spontaneous
  Country: BR (occurrence: BR)
  Receive Date: 20140522
  Receipt Date: 20140522
  Transmission Date: 20141212
  Serious: Yes (Other)
  Sender: FDA-Public Use
  Company Number: BR-JNJFOC-20140508528

PATIENT
  Age: 41 Year
  Sex: Male

DRUGS (1)
  1. SPORANOX [Suspect]
     Indication: ASPERGILLUS INFECTION
     Route: 065
     Dates: start: 201311

REACTIONS (2)
  - Pulmonary mass [Not Recovered/Not Resolved]
  - Drug ineffective [Unknown]
